FAERS Safety Report 9853560 (Version 4)
Quarter: 2014Q1

REPORT INFORMATION
  Report Type: Report from Study
  Country: US (occurrence: US)
  Receive Date: 20140129
  Receipt Date: 20140310
  Transmission Date: 20141002
  Serious: Yes (Hospitalization)
  Sender: FDA-Public Use
  Company Number: US-ACTELION-A-US2014-94179

PATIENT
  Age: 66 Year
  Sex: Female

DRUGS (2)
  1. VENTAVIS [Suspect]
     Indication: PULMONARY ARTERIAL HYPERTENSION
     Dosage: 2.5 MCG, 6 X DAILY
     Route: 055
     Dates: start: 20120606
  2. ADCIRCA [Concomitant]

REACTIONS (3)
  - Lower respiratory tract inflammation [Unknown]
  - Respiratory tract congestion [Unknown]
  - Viral infection [Recovering/Resolving]
